FAERS Safety Report 22258766 (Version 1)
Quarter: 2023Q2

REPORT INFORMATION
  Report Type: Spontaneous
  Country: US (occurrence: US)
  Receive Date: 20230427
  Receipt Date: 20230427
  Transmission Date: 20230721
  Serious: Yes (Other)
  Sender: FDA-Public Use
  Company Number: US-TORRENT-00012621

PATIENT
  Age: 60 Year
  Sex: Male

DRUGS (1)
  1. MINOCYCLINE [Suspect]
     Active Substance: MINOCYCLINE HYDROCHLORIDE
     Indication: Rosacea
     Dosage: FOR MORE THAN 20 YEARS
     Route: 065

REACTIONS (7)
  - Vasculitis [Unknown]
  - Skin necrosis [Recovered/Resolved]
  - Skin hyperpigmentation [Recovering/Resolving]
  - Gingival hyperpigmentation [Recovering/Resolving]
  - Mucosal pigmentation [Recovering/Resolving]
  - Hypoaesthesia [Unknown]
  - Neuralgia [Recovering/Resolving]
